FAERS Safety Report 15900443 (Version 1)
Quarter: 2019Q1

REPORT INFORMATION
  Report Type: Spontaneous
  Country: US (occurrence: US)
  Receive Date: 20190131
  Receipt Date: 20190131
  Transmission Date: 20190417
  Serious: No
  Sender: FDA-Public Use
  Company Number: None

PATIENT
  Age: 78 Year
  Sex: Male
  Weight: 61.2 kg

DRUGS (9)
  1. ASPIRIN. [Concomitant]
     Active Substance: ASPIRIN
  2. CALCIUM 500 + D [Concomitant]
     Active Substance: CALCIUM\VITAMIN D
  3. VITAMIN A [Concomitant]
     Active Substance: VITAMIN A
  4. ANAGRELIDE. [Suspect]
     Active Substance: ANAGRELIDE HYDROCHLORIDE
     Indication: POLYCYTHAEMIA
  5. GINKGO [Concomitant]
     Active Substance: GINKGO
  6. MULTIVITAMIN [Concomitant]
     Active Substance: VITAMINS
  7. MYLERAN [Suspect]
     Active Substance: BUSULFAN
     Indication: POLYCYTHAEMIA VERA
     Route: 048
     Dates: start: 20181231
  8. LEVOCARNITINE. [Concomitant]
     Active Substance: LEVOCARNITINE
  9. SAW PALMETTO [Concomitant]
     Active Substance: HERBALS\SAW PALMETTO

REACTIONS (3)
  - Rash pruritic [None]
  - Drug ineffective [None]
  - Inflammation [None]
